FAERS Safety Report 4457030-3 (Version None)
Quarter: 2004Q3

REPORT INFORMATION
  Report Type: 
  Country: None (occurrence: None)
  Receive Date: 20040923
  Receipt Date: 20040914
  Transmission Date: 20050211
  Serious: Yes (Hospitalization)
  Sender: FDA-Public Use
  Company Number: SA-GLAXOSMITHKLINE-B0346031A

PATIENT
  Sex: Female

DRUGS (2)
  1. AVANDIA [Suspect]
     Route: 048
     Dates: start: 20040901, end: 20040914
  2. LIPITOR [Concomitant]

REACTIONS (3)
  - BLOOD CREATINE PHOSPHOKINASE INCREASED [None]
  - HEPATIC ENZYME INCREASED [None]
  - RHABDOMYOLYSIS [None]
